FAERS Safety Report 15737568 (Version 1)
Quarter: 2018Q4

REPORT INFORMATION
  Report Type: Spontaneous
  Country: US (occurrence: US)
  Receive Date: 20181219
  Receipt Date: 20181219
  Transmission Date: 20190205
  Serious: No
  Sender: FDA-Public Use
  Company Number: US-TEVA-2018-US-988427

PATIENT
  Age: 50 Year
  Sex: Female
  Weight: 95.34 kg

DRUGS (3)
  1. RELPAX [Concomitant]
     Active Substance: ELETRIPTAN HYDROBROMIDE
  2. AJOVY [Suspect]
     Active Substance: FREMANEZUMAB-VFRM
     Indication: MIGRAINE
     Dosage: 1 INJECTION EVERY MONTH
     Route: 058
     Dates: start: 201810
  3. TIMOLOL. [Concomitant]
     Active Substance: TIMOLOL

REACTIONS (3)
  - Device difficult to use [Unknown]
  - Injection site haemorrhage [Recovering/Resolving]
  - Contusion [Recovering/Resolving]

NARRATIVE: CASE EVENT DATE: 20181204
